FAERS Safety Report 9396080 (Version 1)
Quarter: 2013Q3

REPORT INFORMATION
  Report Type: Spontaneous
  Country: JP (occurrence: None)
  Receive Date: 20130708
  Receipt Date: 20130708
  Transmission Date: 20140515
  Serious: Yes (Other)
  Sender: FDA-Public Use
  Company Number: TPA2013A06290

PATIENT
  Age: 70 Year
  Sex: Male

DRUGS (2)
  1. FEBURIC (FEBUXOSTAT) [Suspect]
     Indication: GOUT
     Dosage: 20 MG (20 MG, 1 IN 1D), ORAL
     Route: 048
     Dates: start: 20130518, end: 20130520
  2. BUFFERIN (ACETYLSALICYLIC ACID) [Concomitant]

REACTIONS (11)
  - Altered state of consciousness [None]
  - Gout [None]
  - Headache [None]
  - Nausea [None]
  - Malaise [None]
  - Alcohol use [None]
  - Loss of consciousness [None]
  - Vomiting [None]
  - Head injury [None]
  - Blood pressure decreased [None]
  - Vasodilatation [None]
